FAERS Safety Report 7945224-1 (Version None)
Quarter: 2011Q4

REPORT INFORMATION
  Report Type: 
  Country: None (occurrence: None)
  Receive Date: 20111129
  Receipt Date: 20110512
  Transmission Date: 20120403
  Serious: No
  Sender: FDA-Public Use
  Company Number: US-GLAXOSMITHKLINE-A0927142A

PATIENT
  Age: 72 Year
  Sex: Male

DRUGS (3)
  1. ZYRTEC [Concomitant]
  2. AMLODIPINE [Concomitant]
  3. FLOVENT [Suspect]
     Indication: ASTHMA
     Dosage: 1PUFF SINGLE DOSE
     Route: 055
     Dates: start: 20110511

REACTIONS (2)
  - URTICARIA [None]
  - PRURITUS [None]
